FAERS Safety Report 6457115-6 (Version None)
Quarter: 2009Q4

REPORT INFORMATION
  Report Type: 
  Country: None (occurrence: None)
  Receive Date: 20091125
  Receipt Date: 20091120
  Transmission Date: 20100525
  Serious: Yes (Hospitalization, Disabling)
  Sender: FDA-Public Use
  Company Number: B0601532A

PATIENT
  Sex: Female

DRUGS (9)
  1. ARIXTRA [Suspect]
     Indication: THROMBOSIS PROPHYLAXIS
     Dosage: 2.5MG PER DAY
     Route: 058
     Dates: start: 20090624, end: 20090626
  2. ANTIHYPERTENSIVE (UNSPECIFIED) [Concomitant]
     Route: 065
  3. DIABETES MEDICATION [Concomitant]
     Route: 065
  4. AMLODIPINE [Concomitant]
     Dosage: 5MG PER DAY
     Route: 048
  5. RENITEC [Concomitant]
     Dosage: 5MG TWICE PER DAY
     Route: 048
  6. CELECTOL [Concomitant]
     Dosage: 200MG PER DAY
     Route: 048
  7. METFORMIN HCL [Concomitant]
     Route: 048
  8. MINDIAB [Concomitant]
     Dosage: 20MG PER DAY
     Route: 048
  9. SIMVASTATIN [Concomitant]
     Dosage: 20MG PER DAY
     Route: 048

REACTIONS (5)
  - EXTRADURAL HAEMATOMA [None]
  - HYPOAESTHESIA [None]
  - PAIN [None]
  - PERONEAL NERVE PALSY [None]
  - SPINAL COLUMN STENOSIS [None]
